FAERS Safety Report 19516161 (Version 1)
Quarter: 2021Q3

REPORT INFORMATION
  Report Type: Spontaneous
  Country: US (occurrence: US)
  Receive Date: 20210710
  Receipt Date: 20210710
  Transmission Date: 20211014
  Serious: Yes (Death)
  Sender: FDA-Public Use
  Company Number: NVSC2021US153797

PATIENT
  Age: 50 Year
  Sex: Female

DRUGS (2)
  1. RANITIDINE. [Suspect]
     Active Substance: RANITIDINE
     Indication: GASTROOESOPHAGEAL REFLUX DISEASE
     Dosage: 150 MG, 4 TO 5 TIMES A WEEK
     Route: 065
     Dates: start: 200001, end: 201812
  2. RANITIDINE. [Suspect]
     Active Substance: RANITIDINE
     Indication: GASTROOESOPHAGEAL REFLUX DISEASE
     Dosage: 150 MG, 4 TO 5 TIMES A WEEK
     Route: 065
     Dates: start: 200001, end: 201812

REACTIONS (4)
  - Incorrect dose administered [Unknown]
  - Inappropriate schedule of product administration [Unknown]
  - Brain neoplasm malignant [Fatal]
  - Breast cancer [Fatal]

NARRATIVE: CASE EVENT DATE: 20171207
